FAERS Safety Report 5162144-9 (Version None)
Quarter: 2006Q4

REPORT INFORMATION
  Report Type: 
  Country: None (occurrence: None)
  Receive Date: 20061121
  Receipt Date: 20061113
  Transmission Date: 20070319
  Serious: Yes (Disabling)
  Sender: FDA-Public Use
  Company Number: SEWYE530215NOV06

PATIENT
  Age: 49 Year
  Sex: Male

DRUGS (6)
  1. EFFEXOR [Suspect]
     Indication: DEPRESSION
     Dosage: SEE IMAGE
     Route: 048
     Dates: start: 20060101, end: 20060101
  2. EFFEXOR [Suspect]
     Indication: DEPRESSION
     Dosage: SEE IMAGE
     Route: 048
     Dates: start: 20060601, end: 20060101
  3. EFFEXOR [Suspect]
     Indication: DEPRESSION
     Dosage: SEE IMAGE
     Route: 048
     Dates: start: 20060701, end: 20061015
  4. ALCOHOL [Suspect]
     Dosage: 4-7 500 ML BEERS DAILY, PREVIOUSLY 12-16 ORAL
     Route: 048
  5. SIMVASTATIN [Concomitant]
  6. INSULATARD NPH HUMAN [Concomitant]

REACTIONS (8)
  - ALCOHOL INTERACTION [None]
  - ALCOHOL INTOLERANCE [None]
  - ALCOHOLISM [None]
  - CONDITION AGGRAVATED [None]
  - DEPRESSION [None]
  - LOSS OF CONSCIOUSNESS [None]
  - MALAISE [None]
  - NIGHTMARE [None]
